FAERS Safety Report 13824807 (Version 1)
Quarter: 2017Q3

REPORT INFORMATION
  Report Type: Other
  Country: None (occurrence: US)
  Receive Date: 20170802
  Receipt Date: 20170802
  Transmission Date: 20171127
  Serious: Yes (Death, Life-Threatening, Other)
  Sender: FDA-Public Use
  Company Number: US-MEDAC PHARMA, INC.-2024062

PATIENT
  Age: 65 Year
  Sex: Male

DRUGS (3)
  1. ADALIMUMAB [Suspect]
     Active Substance: ADALIMUMAB
  2. METHOTREXATE. [Suspect]
     Active Substance: METHOTREXATE
     Indication: PSORIATIC ARTHROPATHY
  3. ETANERCEPT [Suspect]
     Active Substance: ETANERCEPT

REACTIONS (2)
  - Papilloma viral infection [Fatal]
  - Oropharyngeal squamous cell carcinoma [Fatal]
